FAERS Safety Report 7736111-2 (Version None)
Quarter: 2011Q3

REPORT INFORMATION
  Report Type: 
  Country: None (occurrence: None)
  Receive Date: 20110902
  Receipt Date: 20110817
  Transmission Date: 20111222
  Serious: Yes (Other)
  Sender: FDA-Public Use
  Company Number: FK201101746

PATIENT
  Age: 64 Year
  Sex: Female

DRUGS (3)
  1. OXAIPLATIN (OXALIPLATIN) (OXALIPLATIN) [Concomitant]
  2. FLUOROURACIL [Suspect]
     Indication: COLON CANCER METASTATIC
     Dosage: 400 MG/M2, INTRAVENOUS BOLUS ; 2400 MG/2M, OVER 48 HOURS, EVERY 2 WEEKS
     Route: 040
  3. LEUCOVORIN (CALCIUM FOLINATE) (CALCIUM FOLINATE) [Concomitant]

REACTIONS (7)
  - GAMMA-GLUTAMYLTRANSFERASE INCREASED [None]
  - CARDIOTOXICITY [None]
  - ANGINA PECTORIS [None]
  - SINUS TACHYCARDIA [None]
  - BLOOD ALKALINE PHOSPHATASE INCREASED [None]
  - CUTANEOUS LUPUS ERYTHEMATOSUS [None]
  - BLOOD LACTATE DEHYDROGENASE INCREASED [None]
